FAERS Safety Report 7853084-2 (Version None)
Quarter: 2011Q3

REPORT INFORMATION
  Report Type: 
  Country: None (occurrence: None)
  Receive Date: 20110915
  Receipt Date: 20110504
  Transmission Date: 20111222
  Serious: Yes (Other)
  Sender: FDA-Public Use
  Company Number: 2011028438

PATIENT
  Sex: Female
  Weight: 83.9 kg

DRUGS (7)
  1. DILAUDID [Concomitant]
  2. LEVOTHYROXINE SODIUM [Concomitant]
  3. ZOMIG [Concomitant]
  4. PRIVIGEN [Suspect]
     Indication: PRIMARY IMMUNODEFICIENCY SYNDROME
     Dosage: SEE IMAGE
     Route: 042
  5. PRIVIGEN [Suspect]
  6. CELEBREX [Concomitant]
  7. GABAPENTIN [Concomitant]

REACTIONS (8)
  - VOMITING [None]
  - MENINGITIS ASEPTIC [None]
  - NECK PAIN [None]
  - PHOTOPHOBIA [None]
  - NAUSEA [None]
  - CHILLS [None]
  - MYALGIA [None]
  - HEADACHE [None]
